FAERS Safety Report 15149439 (Version 1)
Quarter: 2018Q3

REPORT INFORMATION
  Report Type: Spontaneous
  Country: FR (occurrence: FR)
  Receive Date: 20180716
  Receipt Date: 20180716
  Transmission Date: 20181010
  Serious: Yes (Hospitalization)
  Sender: FDA-Public Use
  Company Number: FR-PFIZER INC-2018279203

PATIENT
  Age: 69 Year
  Sex: Male
  Weight: 61 kg

DRUGS (13)
  1. METHYLPREDNISOLONE. [Concomitant]
     Active Substance: METHYLPREDNISOLONE
     Indication: PAIN
     Dosage: 40 MG, 1X/DAY
     Route: 042
     Dates: start: 20180531
  2. SPECIAFOLDINE [Concomitant]
     Active Substance: FOLIC ACID
     Dosage: 0.8 MG, 1X/DAY
     Route: 048
     Dates: start: 20180305
  3. CARBOPLATIN. [Suspect]
     Active Substance: CARBOPLATIN
     Indication: LUNG ADENOCARCINOMA
     Dosage: 410 MG, CYCLIC
     Route: 041
     Dates: start: 20180307, end: 20180509
  4. ALIMTA [Suspect]
     Active Substance: PEMETREXED DISODIUM
     Indication: LUNG ADENOCARCINOMA
     Dosage: 675 MG, CYCLIC
     Route: 041
     Dates: start: 20180307, end: 20180509
  5. MOVENTIG [Concomitant]
     Active Substance: NALOXEGOL OXALATE
     Route: 048
     Dates: start: 20180322
  6. KETAMINE [Concomitant]
     Active Substance: KETAMINE
     Indication: PAIN
     Dosage: 200 MG, SINGLE
     Route: 042
     Dates: start: 20180514
  7. LASILIX /00032601/ [Concomitant]
     Active Substance: FUROSEMIDE
     Dosage: 60 MG, 1X/DAY; RETARD
     Route: 048
     Dates: start: 20180528
  8. OXYNORM [Concomitant]
     Active Substance: OXYCODONE HYDROCHLORIDE
     Indication: PAIN
     Dosage: 1000 MG/KG, 1X/DAY
     Route: 011
     Dates: start: 20180530
  9. INNOHEP [Concomitant]
     Active Substance: TINZAPARIN SODIUM
     Indication: VENOUS THROMBOSIS LIMB
     Dosage: 10000 IU, 1X/DAY
     Route: 048
     Dates: start: 20180509
  10. TAHOR [Concomitant]
     Active Substance: ATORVASTATIN CALCIUM
     Dosage: 10 MCI, 1X/DAY
     Route: 048
  11. KARDEGIC [Concomitant]
     Active Substance: ASPIRIN DL-LYSINE
     Dosage: 75 MG, 1X/DAY
     Route: 048
  12. DIAZEPAM. [Concomitant]
     Active Substance: DIAZEPAM
     Dosage: 7.5 MG, 1X/DAY
     Route: 048
     Dates: start: 20180322
  13. PANTOPRAZOLE [Concomitant]
     Active Substance: PANTOPRAZOLE
     Dosage: 40 MG, 1X/DAY
     Route: 048

REACTIONS (1)
  - Rash erythematous [Not Recovered/Not Resolved]

NARRATIVE: CASE EVENT DATE: 20180520
